FAERS Safety Report 5335929-3 (Version None)
Quarter: 2007Q2

REPORT INFORMATION
  Report Type: 
  Country: None (occurrence: None)
  Receive Date: 20070301
  Receipt Date: 20070104
  Transmission Date: 20071010
  Serious: Yes (Hospitalization)
  Sender: FDA-Public Use
  Company Number: 151543USA

PATIENT
  Sex: Male

DRUGS (4)
  1. AZILECT [Suspect]
     Dosage: 0.5 MG BID ORAL 1.0 MG DAILY FOR APPROX 2 MOS, ORAL
     Route: 048
     Dates: start: 20060101
  2. TRAMADOL HCL [Concomitant]
  3. VICODIN [Concomitant]
  4. TYLOX [Concomitant]

REACTIONS (3)
  - CONVULSION [None]
  - ENCEPHALOPATHY [None]
  - SEROTONIN SYNDROME [None]
